FAERS Safety Report 5707649-4 (Version None)
Quarter: 2008Q2

REPORT INFORMATION
  Report Type: 
  Country: None (occurrence: None)
  Receive Date: 20080415
  Receipt Date: 20080409
  Transmission Date: 20081010
  Serious: Yes (Other)
  Sender: FDA-Public Use
  Company Number: CHPA2008US06333

PATIENT
  Age: 68 Year
  Sex: Male

DRUGS (4)
  1. BENEFIBER [Suspect]
     Indication: NUTRITIONAL SUPPORT
     Dosage: 2 TSP, QD, ORAL
     Route: 048
     Dates: end: 20060409
  2. ADVIL [Concomitant]
  3. ANTIHYPERTENSIVES (NO INGREDIENTS/SUBSTANCES) [Concomitant]
  4. PRILOSEC [Concomitant]

REACTIONS (1)
  - HAEMATOCHEZIA [None]
